FAERS Safety Report 9574565 (Version 2)
Quarter: 2013Q4

REPORT INFORMATION
  Report Type: Spontaneous
  Country: US (occurrence: US)
  Receive Date: 20131001
  Receipt Date: 20131001
  Transmission Date: 20140711
  Serious: No
  Sender: FDA-Public Use
  Company Number: US-PURDUE-USA-2012-0084108

PATIENT
  Sex: Female
  Weight: 63.49 kg

DRUGS (2)
  1. BUTRANS [Suspect]
     Indication: ANALGESIC THERAPY
     Dosage: 10 MCG/HR, UNK
     Route: 062
     Dates: start: 20120224, end: 20120424
  2. BUTRANS [Suspect]
     Dosage: 5 MCG/HR, UNK
     Route: 062
     Dates: start: 20120127, end: 20120224

REACTIONS (4)
  - Application site discolouration [Unknown]
  - Application site rash [Recovered/Resolved]
  - Application site irritation [Unknown]
  - Application site vesicles [Unknown]
